FAERS Safety Report 9173991 (Version 1)
Quarter: 2013Q1

REPORT INFORMATION
  Report Type: Spontaneous
  Country: US (occurrence: US)
  Receive Date: 20130320
  Receipt Date: 20130320
  Transmission Date: 20140127
  Serious: No
  Sender: FDA-Public Use
  Company Number: US-PFIZER INC-2013087647

PATIENT
  Age: 67 Year
  Sex: Female

DRUGS (9)
  1. SUTENT [Suspect]
     Indication: RENAL CELL CARCINOMA
     Dosage: 50 MG, UNK
     Route: 048
     Dates: start: 20130226
  2. CALCITRIOL [Concomitant]
     Dosage: UNK
  3. HYDROCHLOROTHIAZIDE/TRIAMTERENE [Concomitant]
     Dosage: UNK
  4. LEVOTHYROXINE SODIUM [Concomitant]
     Dosage: UNK
  5. WARFARIN SODIUM [Concomitant]
     Dosage: UNK
  6. METOPROLOL TARTRATE [Concomitant]
     Dosage: UNK
  7. NIFEDIPINE [Concomitant]
     Dosage: UNK
  8. POTASSIUM [Concomitant]
     Dosage: UNK
  9. PRAZOSIN HYDROCHLORIDE [Concomitant]
     Dosage: UNK

REACTIONS (6)
  - Skin disorder [Unknown]
  - Dyspepsia [Unknown]
  - Dysphagia [Unknown]
  - Diarrhoea [Unknown]
  - Fatigue [Unknown]
  - Myalgia [Unknown]
